FAERS Safety Report 24027841 (Version 2)
Quarter: 2024Q3

REPORT INFORMATION
  Report Type: Spontaneous
  Country: GB (occurrence: GB)
  Receive Date: 20240628
  Receipt Date: 20240701
  Transmission Date: 20241016
  Serious: Yes (Disabling, Other)
  Sender: ABBVIE
  Company Number: None

PATIENT
  Age: 32 Year
  Sex: Female
  Weight: 84 kg

DRUGS (3)
  1. BOTOX [Suspect]
     Active Substance: ONABOTULINUMTOXINA
     Indication: Facial cosmetic procedure
     Dosage: 36UNITS ONE AND ONLY TIME
     Route: 065
     Dates: start: 2023, end: 2023
  2. BOTOX [Suspect]
     Active Substance: ONABOTULINUMTOXINA
     Indication: Facial cosmetic procedure
     Dosage: 36UNITS ONE AND ONLY TIME
     Route: 065
     Dates: start: 2023, end: 2023
  3. SPIRONOLACTONE [Concomitant]
     Active Substance: SPIRONOLACTONE
     Indication: Alopecia
     Dates: start: 202309, end: 202402

REACTIONS (38)
  - Visual snow syndrome [Not Recovered/Not Resolved]
  - Dry skin [Not Recovered/Not Resolved]
  - Head discomfort [Recovering/Resolving]
  - Blepharospasm [Not Recovered/Not Resolved]
  - Vision blurred [Not Recovered/Not Resolved]
  - Medication error [Unknown]
  - Neuralgia [Recovering/Resolving]
  - Rhinitis [Not Recovered/Not Resolved]
  - Tremor [Not Recovered/Not Resolved]
  - Flank pain [Not Recovered/Not Resolved]
  - Acanthosis nigricans [Not Recovered/Not Resolved]
  - Diplopia [Recovered/Resolved]
  - Vitreous floaters [Not Recovered/Not Resolved]
  - Muscle twitching [Not Recovered/Not Resolved]
  - Photopsia [Not Recovered/Not Resolved]
  - Tinnitus [Not Recovered/Not Resolved]
  - Central nervous system stimulation [Not Recovered/Not Resolved]
  - Skin hyperpigmentation [Not Recovered/Not Resolved]
  - Dry eye [Recovering/Resolving]
  - Abdominal pain [Not Recovered/Not Resolved]
  - Histamine intolerance [Not Recovered/Not Resolved]
  - Upper-airway cough syndrome [Not Recovered/Not Resolved]
  - Red blood cell count increased [Not Recovered/Not Resolved]
  - Haematocrit increased [Not Recovered/Not Resolved]
  - Hyperacusis [Not Recovered/Not Resolved]
  - Mean platelet volume increased [Not Recovered/Not Resolved]
  - Haemoglobin increased [Not Recovered/Not Resolved]
  - Dizziness [Not Recovered/Not Resolved]
  - Temperature intolerance [Not Recovered/Not Resolved]
  - Sinus bradycardia [Not Recovered/Not Resolved]
  - Bowel movement irregularity [Not Recovered/Not Resolved]
  - Ear congestion [Not Recovered/Not Resolved]
  - Vertigo [Recovering/Resolving]
  - Sleep paralysis [Recovered/Resolved]
  - Photophobia [Not Recovered/Not Resolved]
  - Urticaria cholinergic [Not Recovered/Not Resolved]
  - Dandruff [Not Recovered/Not Resolved]
  - Derealisation [Recovering/Resolving]

NARRATIVE: CASE EVENT DATE: 20230301
